FAERS Safety Report 12832020 (Version 1)
Quarter: 2016Q4

REPORT INFORMATION
  Report Type: Report from Study
  Country: MX (occurrence: MX)
  Receive Date: 20161010
  Receipt Date: 20161010
  Transmission Date: 20170207
  Serious: Yes (Death, Hospitalization)
  Sender: FDA-Public Use
  Company Number: MX-ROCHE-1434002

PATIENT
  Age: 63 Year
  Sex: Female
  Weight: 72 kg

DRUGS (8)
  1. ROACTEMRA [Suspect]
     Active Substance: TOCILIZUMAB
     Dosage: MOST RECENT DOSE IN OCT/2014?RECENT DOSE: JUN/2016.
     Route: 042
     Dates: start: 201302
  2. BI-EUGLUCON M [Concomitant]
     Dosage: 500 MG IN THE MORNING 500 MG AT NIGHT
     Route: 048
     Dates: start: 2007
  3. OMEPRAZOL [Concomitant]
     Active Substance: OMEPRAZOLE
     Dosage: TWO 20MG CAPSULES A DAY
     Route: 048
     Dates: start: 2004
  4. ROACTEMRA [Suspect]
     Active Substance: TOCILIZUMAB
     Indication: RHEUMATOID ARTHRITIS
     Route: 042
     Dates: start: 2012, end: 201302
  5. BI-EUGLUCON M [Concomitant]
     Indication: DIABETES MELLITUS
     Dosage: 500 MG IN THE MORNING 500 MG AT NIGHT
     Route: 048
     Dates: start: 2007
  6. STUGERON [Concomitant]
     Active Substance: CINNARIZINE
     Indication: DIABETES MELLITUS
     Route: 048
     Dates: start: 2012
  7. OMEPRAZOL [Concomitant]
     Active Substance: OMEPRAZOLE
     Dosage: TWO 20 MG CAPSULES A DAY
     Route: 048
     Dates: start: 2004
  8. HUMIRA [Concomitant]
     Active Substance: ADALIMUMAB
     Indication: RHEUMATOID ARTHRITIS
     Route: 058
     Dates: start: 2011, end: 2012

REACTIONS (20)
  - Asthenia [Not Recovered/Not Resolved]
  - Body temperature increased [Not Recovered/Not Resolved]
  - Renal colic [Recovered/Resolved]
  - Joint swelling [Recovered/Resolved]
  - Sleep disorder [Unknown]
  - Localised infection [Recovering/Resolving]
  - Dyspnoea [Recovered/Resolved]
  - Death [Fatal]
  - Arthralgia [Recovered/Resolved]
  - Blood pressure increased [Recovered/Resolved]
  - Diabetes mellitus [Not Recovered/Not Resolved]
  - Swelling [Recovered/Resolved]
  - Kidney infection [Recovered/Resolved]
  - Nephritis [Not Recovered/Not Resolved]
  - Pharyngitis [Recovered/Resolved]
  - Joint effusion [Recovered/Resolved]
  - Drug hypersensitivity [Recovered/Resolved]
  - Nephrolithiasis [Not Recovered/Not Resolved]
  - Peripheral swelling [Recovered/Resolved]
  - Lymphoedema [Not Recovered/Not Resolved]

NARRATIVE: CASE EVENT DATE: 20140523
